FAERS Safety Report 6266489-0 (Version None)
Quarter: 2009Q3

REPORT INFORMATION
  Report Type: 
  Country: None (occurrence: None)
  Receive Date: 20090710
  Receipt Date: 20090629
  Transmission Date: 20100115
  Serious: Yes (Other)
  Sender: FDA-Public Use
  Company Number: WAES 0907USA00295

PATIENT
  Age: 77 Year
  Sex: Female

DRUGS (6)
  1. FOSAMAX [Suspect]
     Indication: OSTEOPOROSIS
     Dosage: 35 MG/WKY/PO
     Route: 048
     Dates: start: 20071212, end: 20081015
  2. CELECOX [Concomitant]
  3. ELCITONIN [Concomitant]
  4. FRANDOL TAPE S [Concomitant]
  5. NORVASC [Concomitant]
  6. VOLTAREN [Concomitant]

REACTIONS (3)
  - BLOOD TEST ABNORMAL [None]
  - DYSPEPSIA [None]
  - RENAL IMPAIRMENT [None]
